FAERS Safety Report 12242519 (Version 1)
Quarter: 2016Q2

REPORT INFORMATION
  Report Type: Report from Study
  Country: JP (occurrence: JP)
  Receive Date: 20160406
  Receipt Date: 20160406
  Transmission Date: 20160815
  Serious: Yes (Other)
  Sender: FDA-Public Use
  Company Number: JP-B.I. PHARMACEUTICALS,INC./RIDGEFIELD-2016-BI-20013NB

PATIENT
  Age: 68 Year
  Sex: Male
  Weight: 69 kg

DRUGS (4)
  1. BENIDIPINE HYDROCHLORIDE [Concomitant]
     Active Substance: BENIDIPINE HYDROCHLORIDE
     Indication: PRODUCT USED FOR UNKNOWN INDICATION
     Dosage: 4 MG
     Route: 065
     Dates: end: 20151211
  2. FUDOSTEINE [Concomitant]
     Active Substance: FUDOSTEINE
     Indication: IDIOPATHIC PULMONARY FIBROSIS
     Dosage: 600 MG
     Route: 065
  3. OFEV [Suspect]
     Active Substance: NINTEDANIB
     Dosage: 200 MG
     Route: 065
     Dates: start: 20151215
  4. OFEV [Suspect]
     Active Substance: NINTEDANIB
     Indication: IDIOPATHIC PULMONARY FIBROSIS
     Dosage: 300 MG
     Route: 065
     Dates: start: 20151117, end: 20151215

REACTIONS (5)
  - Chest pain [Not Recovered/Not Resolved]
  - Constipation [Recovered/Resolved]
  - Hepatic function abnormal [Not Recovered/Not Resolved]
  - Abdominal pain upper [Recovered/Resolved]
  - Hyperlipidaemia [Unknown]

NARRATIVE: CASE EVENT DATE: 20151120
